FAERS Safety Report 9551679 (Version 4)
Quarter: 2013Q4

REPORT INFORMATION
  Report Type: Spontaneous
  Country: US (occurrence: US)
  Receive Date: 20130925
  Receipt Date: 20131114
  Transmission Date: 20140711
  Serious: Yes (Hospitalization, Other)
  Sender: FDA-Public Use
  Company Number: US-JNJFOC-20130908809

PATIENT
  Age: 54 Year
  Sex: Female

DRUGS (2)
  1. DURAGESIC [Suspect]
     Indication: PRODUCT USED FOR UNKNOWN INDICATION
     Route: 062
     Dates: start: 1996
  2. DURAGESIC [Suspect]
     Indication: PAIN
     Route: 062

REACTIONS (8)
  - Pancreatitis [Unknown]
  - Myocardial infarction [Unknown]
  - Poor quality drug administered [Unknown]
  - Product packaging quantity issue [Unknown]
  - Drug administration error [Unknown]
  - Product adhesion issue [Unknown]
  - Drug dose omission [Not Recovered/Not Resolved]
  - Adverse event [Unknown]
